FAERS Safety Report 10238557 (Version 1)
Quarter: 2014Q2

REPORT INFORMATION
  Report Type: Spontaneous
  Country: CH (occurrence: CH)
  Receive Date: 20140616
  Receipt Date: 20140616
  Transmission Date: 20141212
  Serious: Yes (Hospitalization)
  Sender: FDA-Public Use
  Company Number: CH-SA-2014SA073564

PATIENT
  Age: 46 Year
  Sex: Male

DRUGS (3)
  1. RIFAMPICINE [Suspect]
     Indication: TUBERCULOSIS
     Route: 048
     Dates: start: 201403, end: 20140421
  2. PLAQUENIL [Concomitant]
     Indication: SYSTEMIC LUPUS ERYTHEMATOSUS
     Route: 048
     Dates: start: 201403, end: 20140421
  3. PREDNISONE [Concomitant]
     Indication: SYSTEMIC LUPUS ERYTHEMATOSUS
     Route: 048
     Dates: start: 201403

REACTIONS (7)
  - Anaemia [Not Recovered/Not Resolved]
  - Renal failure acute [Recovering/Resolving]
  - Thrombocytopenia [Recovered/Resolved]
  - Hepatocellular injury [Recovered/Resolved]
  - Nausea [Unknown]
  - Diarrhoea [Unknown]
  - Vomiting [Unknown]
